FAERS Safety Report 6129811-1 (Version None)
Quarter: 2009Q1

REPORT INFORMATION
  Report Type: 
  Country: None (occurrence: None)
  Receive Date: 20090324
  Receipt Date: 20090320
  Transmission Date: 20090719
  Serious: No
  Sender: FDA-Public Use
  Company Number: LV-ROCHE-622984

PATIENT
  Age: 23 Year
  Sex: Female

DRUGS (1)
  1. ROACCUTANE [Suspect]
     Route: 048
     Dates: start: 20081001, end: 20081230

REACTIONS (2)
  - NO ADVERSE EVENT [None]
  - PREGNANCY [None]
